FAERS Safety Report 16451287 (Version 2)
Quarter: 2019Q2

REPORT INFORMATION
  Report Type: Spontaneous
  Country: CH (occurrence: CH)
  Receive Date: 20190619
  Receipt Date: 20190621
  Transmission Date: 20190711
  Serious: Yes (Other)
  Sender: FDA-Public Use
  Company Number: CH-TAKEDA-2019TUS038420

PATIENT
  Age: 54 Year
  Sex: Male

DRUGS (2)
  1. SPIRICORT [Concomitant]
     Active Substance: PREDNISOLONE
     Indication: GOUT
     Dosage: 50 MILLIGRAM, QD
     Route: 048
     Dates: start: 20190521, end: 20190603
  2. ADENURIC [Suspect]
     Active Substance: FEBUXOSTAT
     Indication: GOUT
     Dosage: 40 MILLIGRAM, QD
     Route: 048
     Dates: start: 20190521, end: 20190603

REACTIONS (1)
  - Penile abscess [Recovering/Resolving]

NARRATIVE: CASE EVENT DATE: 20190606
